FAERS Safety Report 5822819-2 (Version None)
Quarter: 2008Q3

REPORT INFORMATION
  Report Type: 
  Country: None (occurrence: None)
  Receive Date: 20080725
  Receipt Date: 20080709
  Transmission Date: 20090109
  Serious: Yes (Other)
  Sender: FDA-Public Use
  Company Number: JP-ASTRAZENECA-2008SE03509

PATIENT
  Age: 55 Year
  Sex: Female

DRUGS (1)
  1. BLOPRESS TABLETS 4 [Suspect]
     Route: 048
     Dates: start: 20070601, end: 20070701

REACTIONS (1)
  - LIVER DISORDER [None]
